FAERS Safety Report 15579949 (Version 1)
Quarter: 2018Q4

REPORT INFORMATION
  Report Type: Spontaneous
  Country: CN (occurrence: CN)
  Receive Date: 20181102
  Receipt Date: 20181102
  Transmission Date: 20190205
  Serious: Yes (Hospitalization)
  Sender: FDA-Public Use
  Company Number: CN-SA-2018SA301225

PATIENT
  Age: 34 Year
  Sex: Female
  Weight: 72.1 kg

DRUGS (5)
  1. DOCETAXEL. [Suspect]
     Active Substance: DOCETAXEL
     Indication: CHEMOTHERAPY
     Dosage: 130 MG, QD
     Route: 041
     Dates: start: 20180814, end: 20180814
  2. GLUCOSE [Concomitant]
     Active Substance: DEXTROSE
     Dosage: 500 ML, QD
     Route: 041
     Dates: start: 20180814, end: 20180814
  3. SODIUM CHLORIDE. [Concomitant]
     Active Substance: SODIUM CHLORIDE
     Dosage: 250 ML, QD
     Route: 041
     Dates: start: 20180814, end: 20180814
  4. CARBOPLATIN. [Suspect]
     Active Substance: CARBOPLATIN
     Indication: CHEMOTHERAPY
     Dosage: 900 MG, QD
     Route: 041
     Dates: start: 20180814, end: 20180814
  5. TRASTUZUMAB. [Suspect]
     Active Substance: TRASTUZUMAB
     Dosage: 420 MG, QD
     Route: 041
     Dates: start: 20180814, end: 20180814

REACTIONS (4)
  - Diarrhoea [Recovering/Resolving]
  - Cytopenia [Recovering/Resolving]
  - Vomiting [Recovering/Resolving]
  - Hepatic function abnormal [Recovering/Resolving]

NARRATIVE: CASE EVENT DATE: 20180818
